FAERS Safety Report 10073129 (Version 1)
Quarter: 2014Q2

REPORT INFORMATION
  Report Type: Spontaneous
  Country: FR (occurrence: FR)
  Receive Date: 20140411
  Receipt Date: 20140411
  Transmission Date: 20141212
  Serious: Yes (Other)
  Sender: FDA-Public Use
  Company Number: FR-ASTRAZENECA-2014SE23559

PATIENT
  Age: 11120 Day
  Sex: Female

DRUGS (2)
  1. XYLOCAINE ADRENALINE [Suspect]
     Indication: EPIDURAL ANAESTHESIA
     Route: 008
     Dates: start: 20140117, end: 20140117
  2. LIDOCAINE AGUETTANT [Suspect]
     Indication: EPIDURAL ANAESTHESIA
     Route: 008
     Dates: start: 20140117, end: 20140117

REACTIONS (2)
  - Anaesthetic complication neurological [Unknown]
  - Drug ineffective [Recovered/Resolved]
